FAERS Safety Report 10607184 (Version 1)
Quarter: 2014Q4

REPORT INFORMATION
  Report Type: Spontaneous
  Country: US (occurrence: US)
  Receive Date: 20141125
  Receipt Date: 20141125
  Transmission Date: 20150529
  Serious: Yes (Disabling)
  Sender: FDA-Public Use
  Company Number: US-SA-2014SA158205

PATIENT
  Sex: Female
  Weight: 57 kg

DRUGS (6)
  1. ZOLPIDEM [Suspect]
     Active Substance: ZOLPIDEM\ZOLPIDEM TARTRATE
     Route: 065
  2. XANAX [Suspect]
     Active Substance: ALPRAZOLAM
     Indication: ANXIETY DISORDER
     Dosage: 1 MG 4 TIMES ADAY AS NEEDED
     Route: 065
  3. BACLOFEN. [Suspect]
     Active Substance: BACLOFEN
     Route: 065
  4. GABAPENTIN. [Suspect]
     Active Substance: GABAPENTIN
     Route: 065
  5. LYRICA [Suspect]
     Active Substance: PREGABALIN
     Indication: NEUROPATHY PERIPHERAL
     Route: 065
  6. CYMBALTA [Suspect]
     Active Substance: DULOXETINE HYDROCHLORIDE
     Route: 065

REACTIONS (9)
  - Somnolence [Unknown]
  - Stiff person syndrome [Unknown]
  - Tremor [Unknown]
  - Arthralgia [Unknown]
  - Anxiety [Unknown]
  - Myalgia [Unknown]
  - Feeling of relaxation [Unknown]
  - Swollen tongue [Unknown]
  - Muscle spasms [Unknown]
